FAERS Safety Report 10671389 (Version 1)
Quarter: 2014Q4

REPORT INFORMATION
  Report Type: Spontaneous
  Country: US (occurrence: None)
  Receive Date: 20141219
  Receipt Date: 20141219
  Transmission Date: 20150529
  Serious: Yes (Other)
  Sender: FDA-Public Use
  Company Number: US-H14001-14-01819

PATIENT
  Age: 15 Year
  Sex: Male

DRUGS (3)
  1. PREDNISONE. [Suspect]
     Active Substance: PREDNISONE
     Indication: HYPERBILIRUBINAEMIA
  2. CEFEPIME [Concomitant]
     Active Substance: CEFEPIME\CEFEPIME HYDROCHLORIDE
  3. AMBISOME (AMPHOTERICIN B, LIPSOME) [Concomitant]

REACTIONS (1)
  - Pneumonia fungal [None]
